FAERS Safety Report 24837953 (Version 1)
Quarter: 2025Q1

REPORT INFORMATION
  Report Type: Spontaneous
  Country: HK (occurrence: HK)
  Receive Date: 20250113
  Receipt Date: 20250113
  Transmission Date: 20250408
  Serious: Yes (Hospitalization, Other)
  Sender: ANI
  Company Number: HK-ANIPHARMA-2025-HK-000003

PATIENT
  Age: 3 Month
  Sex: Female

DRUGS (1)
  1. FLECAINIDE ACETATE [Suspect]
     Active Substance: FLECAINIDE ACETATE
     Indication: Drug provocation test

REACTIONS (1)
  - Electrocardiogram abnormal [Recovered/Resolved]
